FAERS Safety Report 7302049-8 (Version None)
Quarter: 2011Q1

REPORT INFORMATION
  Report Type: 
  Country: None (occurrence: None)
  Receive Date: 20110208
  Receipt Date: 20110128
  Transmission Date: 20110831
  Serious: Yes (Death)
  Sender: FDA-Public Use
  Company Number: 026449

PATIENT
  Sex: Female
  Weight: 62.1428 kg

DRUGS (8)
  1. ASACOL [Concomitant]
  2. IRON [Concomitant]
  3. SPIRONOLACTONE [Concomitant]
  4. OXYCODONE [Concomitant]
  5. KLOR-CON [Concomitant]
  6. ATENOLOL [Concomitant]
  7. CIMZIA [Suspect]
     Indication: CROHN'S DISEASE
     Dosage: (INDUCTION DOSE SUBCUTANEOUS), (2 SHOTS SUBCUTANEOUS)
     Route: 058
     Dates: start: 20101208
  8. CIMZIA [Suspect]
     Indication: CROHN'S DISEASE
     Dosage: (INDUCTION DOSE SUBCUTANEOUS), (2 SHOTS SUBCUTANEOUS)
     Route: 058
     Dates: start: 20101013, end: 20100101

REACTIONS (1)
  - DEATH [None]
